FAERS Safety Report 9049356 (Version 2)
Quarter: 2013Q1

REPORT INFORMATION
  Report Type: Spontaneous
  Country: DE (occurrence: DE)
  Receive Date: 20130205
  Receipt Date: 20130222
  Transmission Date: 20140127
  Serious: Yes (Life-Threatening, Other)
  Sender: FDA-Public Use
  Company Number: DE-BRISTOL-MYERS SQUIBB COMPANY-17307067

PATIENT
  Age: 51 Year
  Sex: Female
  Weight: 83 kg

DRUGS (1)
  1. YERVOY [Suspect]
     Indication: MALIGNANT MELANOMA
     Dosage: 4DEC12,27DEC12,NO OF INF:3,250MG
     Dates: start: 20121113

REACTIONS (5)
  - Rash generalised [Recovered/Resolved]
  - Abdominal pain [Recovered/Resolved]
  - Nausea [Recovered/Resolved]
  - Tooth extraction [Unknown]
  - Abdominal pain upper [Unknown]
